FAERS Safety Report 21081660 (Version 2)
Quarter: 2022Q3

REPORT INFORMATION
  Report Type: Spontaneous
  Country: FR (occurrence: FR)
  Receive Date: 20220714
  Receipt Date: 20220812
  Transmission Date: 20221027
  Serious: Yes (Life-Threatening, Hospitalization, Disabling)
  Sender: FDA-Public Use
  Company Number: FR-PFIZER INC-202200807031

PATIENT
  Age: 74 Year
  Sex: Male
  Weight: 84 kg

DRUGS (8)
  1. NOVATREX (METHOTREXATE) [Suspect]
     Active Substance: METHOTREXATE SODIUM
     Indication: Rheumatoid arthritis
     Dosage: UNK
     Route: 048
     Dates: start: 2008, end: 2014
  2. NOVATREX (METHOTREXATE) [Suspect]
     Active Substance: METHOTREXATE SODIUM
     Dosage: 15 MG, WEEKLY (6 X 2.5 MG PER WEEK)
     Route: 048
     Dates: start: 2019
  3. METHOTREXATE SODIUM [Suspect]
     Active Substance: METHOTREXATE SODIUM
     Indication: Rheumatoid arthritis
     Dosage: ONCE WEEKLY
     Route: 058
     Dates: start: 2014, end: 20151026
  4. ELIQUIS [Concomitant]
     Active Substance: APIXABAN
     Indication: Atrial fibrillation
     Dosage: 2 DF, DAILY
     Route: 048
     Dates: start: 20151026
  5. ELIQUIS [Concomitant]
     Active Substance: APIXABAN
     Indication: Arrhythmia
  6. PREDNISONE [Concomitant]
     Active Substance: PREDNISONE
     Dosage: 4 MG, DAILY
  7. CORTISONE [Concomitant]
     Active Substance: CORTISONE
     Route: 048
  8. FOLIC ACID [Concomitant]
     Active Substance: FOLIC ACID
     Route: 048

REACTIONS (6)
  - Atrial fibrillation [Recovering/Resolving]
  - Arrhythmia [Recovering/Resolving]
  - Vertigo positional [Not Recovered/Not Resolved]
  - Coordination abnormal [Not Recovered/Not Resolved]
  - Balance disorder [Not Recovered/Not Resolved]
  - Dizziness [Not Recovered/Not Resolved]

NARRATIVE: CASE EVENT DATE: 20151026
